FAERS Safety Report 15289790 (Version 1)
Quarter: 2018Q3

REPORT INFORMATION
  Report Type: Spontaneous
  Country: FR (occurrence: FR)
  Receive Date: 20180817
  Receipt Date: 20180817
  Transmission Date: 20181010
  Serious: Yes (Hospitalization)
  Sender: FDA-Public Use
  Company Number: FR-TEVA-2018-FR-942715

PATIENT
  Age: 68 Year
  Sex: Female
  Weight: 46 kg

DRUGS (12)
  1. SOLUPRED [Concomitant]
     Route: 065
  2. CARBOPLATINE [Suspect]
     Active Substance: CARBOPLATIN
     Indication: LUNG ADENOCARCINOMA
     Dosage: 1 DOSAGE FORMS DAILY;
     Route: 042
     Dates: start: 20180702, end: 20180702
  3. KARDEGIC [Concomitant]
     Active Substance: ASPIRIN DL-LYSINE
  4. PARACETAMOL [Concomitant]
     Active Substance: ACETAMINOPHEN
     Route: 065
  5. ATARAX [Concomitant]
     Active Substance: HYDROXYZINE HYDROCHLORIDE
  6. VOGALENE [Concomitant]
     Active Substance: METOPIMAZINE
     Route: 065
  7. DOXYCYCLINE. [Concomitant]
     Active Substance: DOXYCYCLINE
     Route: 065
  8. DUROGESIC [Concomitant]
     Active Substance: FENTANYL
     Route: 065
  9. ALIMTA [Suspect]
     Active Substance: PEMETREXED DISODIUM
     Indication: LUNG ADENOCARCINOMA
     Dosage: 1 DOSAGE FORMS DAILY;
     Route: 042
     Dates: start: 20180702, end: 20180702
  10. LOXEN L P 50 MG, G?LULE ? LIB?RATION PROLONG?E [Concomitant]
     Active Substance: NICARDIPINE HYDROCHLORIDE
  11. LYRICA 25 MG, G?LULE [Concomitant]
  12. KEPPRA [Concomitant]
     Active Substance: LEVETIRACETAM
     Route: 065

REACTIONS (3)
  - Urticaria [Recovering/Resolving]
  - Pruritus [Recovering/Resolving]
  - Purpura [Recovering/Resolving]

NARRATIVE: CASE EVENT DATE: 20180703
